FAERS Safety Report 23436722 (Version 6)
Quarter: 2024Q2

REPORT INFORMATION
  Report Type: Spontaneous
  Country: US (occurrence: US)
  Receive Date: 20240124
  Receipt Date: 20240523
  Transmission Date: 20240716
  Serious: Yes (Other)
  Sender: FDA-Public Use
  Company Number: US-BRISTOL-MYERS SQUIBB COMPANY-2024-010738

PATIENT
  Age: 74 Year
  Sex: Male

DRUGS (4)
  1. LENALIDOMIDE [Suspect]
     Active Substance: LENALIDOMIDE
     Indication: Plasma cell myeloma
  2. LENALIDOMIDE [Suspect]
     Active Substance: LENALIDOMIDE
     Route: 048
  3. DARZALEX [Concomitant]
     Active Substance: DARATUMUMAB
     Indication: Product used for unknown indication
  4. XGEVA [Concomitant]
     Active Substance: DENOSUMAB
     Indication: Product used for unknown indication

REACTIONS (9)
  - Arthralgia [Unknown]
  - Constipation [Unknown]
  - Dyspnoea [Unknown]
  - Rash [Unknown]
  - Off label use [Unknown]
  - Fatigue [Unknown]
  - Product physical issue [Recovered/Resolved]
  - Poor quality product administered [Recovered/Resolved]
  - Nasopharyngitis [Not Recovered/Not Resolved]
